FAERS Safety Report 9804072 (Version 2)
Quarter: 2014Q2

REPORT INFORMATION
  Report Type: Spontaneous
  Country: US (occurrence: None)
  Receive Date: 20140103
  Receipt Date: 20140401
  Transmission Date: 20141212
  Serious: Yes (Other)
  Sender: FDA-Public Use
  Company Number: 2013-US-004854

PATIENT
  Age: 39 Year
  Sex: Female
  Weight: 92.5 kg

DRUGS (6)
  1. XYREM [Suspect]
     Indication: NARCOLEPSY
     Route: 048
     Dates: start: 201109
  2. CELEXA (CITALOPRAM HYDROBROMIDE) [Concomitant]
  3. LISINOPRIL (LISINOPRIL) [Concomitant]
  4. METFORMIN HYDROCHLORIDE (METFORMIN HYDROCHLORIDE) [Concomitant]
  5. OMEPRAZOLE (OMEPRAZOLE) [Concomitant]
  6. ADDERALL [Concomitant]

REACTIONS (8)
  - Foot fracture [None]
  - Fall [None]
  - Ligament rupture [None]
  - Limb injury [None]
  - Urinary tract infection [None]
  - Somnolence [None]
  - Limb injury [None]
  - Somnambulism [None]
